FAERS Safety Report 5630114-X (Version None)
Quarter: 2008Q1

REPORT INFORMATION
  Report Type: 
  Country: None (occurrence: None)
  Receive Date: 20080218
  Receipt Date: 20080207
  Transmission Date: 20080703
  Serious: Yes (Hospitalization)
  Sender: FDA-Public Use
  Company Number: PHNU2008DE00864

PATIENT
  Sex: Male

DRUGS (10)
  1. LEPONEX [Suspect]
     Route: 048
  2. LEPONEX [Suspect]
     Dosage: 50 MG/DAY
     Route: 048
     Dates: start: 20070101
  3. LEPONEX [Suspect]
     Dosage: 37.5 MG/DAY
     Route: 048
     Dates: start: 20071001
  4. LEPONEX [Suspect]
     Dosage: 25 MG/DAY
     Route: 048
     Dates: start: 20071201, end: 20080205
  5. DIAZEPAM [Suspect]
     Dosage: 10 MG/DAY
     Route: 048
     Dates: start: 20060101
  6. DIAZEPAM [Suspect]
     Dosage: UP TO 40 MG/DAY
     Route: 048
  7. ZOLOFT [Concomitant]
     Dosage: 100 MG/DAY
     Route: 048
  8. NEXIUM [Concomitant]
     Dosage: 20 MG/DAY
     Route: 048
  9. ASPIRIN [Concomitant]
     Dosage: 100 MG/DAY
     Route: 048
  10. TAMSULOSIN HCL [Concomitant]
     Dosage: 0.4 MG/DAY
     Route: 048

REACTIONS (4)
  - APHASIA [None]
  - DIZZINESS [None]
  - DRUG ADMINISTRATION ERROR [None]
  - DRUG LEVEL INCREASED [None]
